FAERS Safety Report 7398202-8 (Version None)
Quarter: 2011Q2

REPORT INFORMATION
  Report Type: 
  Country: None (occurrence: None)
  Receive Date: 20110406
  Receipt Date: 20110401
  Transmission Date: 20111010
  Serious: Yes (Hospitalization, Other)
  Sender: FDA-Public Use
  Company Number: FR-B.I. PHARMACEUTICALS,INC./RIDGEFIELD-2011-FF-00336FF

PATIENT
  Sex: Male

DRUGS (7)
  1. MICARDIS [Suspect]
     Dosage: 80 MG
     Route: 048
     Dates: end: 20101213
  2. PREVISCAN [Suspect]
     Dosage: 3/4 OR 1 TABLET
     Route: 048
     Dates: end: 20101213
  3. DI ANTALVIC [Suspect]
     Route: 048
     Dates: start: 20101209, end: 20101213
  4. CORDARONE [Concomitant]
     Dosage: 1/2 TABLET DAILY
     Route: 048
  5. CEBUTID [Suspect]
     Dosage: 100 MG
     Route: 048
     Dates: start: 20101209, end: 20101213
  6. TEMERIT [Concomitant]
     Dosage: 1/2 TABLET DAILY
     Route: 048
  7. LASIX [Suspect]
     Dosage: 20 MG
     Route: 048
     Dates: end: 20101213

REACTIONS (7)
  - URINARY RETENTION [None]
  - RENAL FAILURE ACUTE [None]
  - NEOPLASM PROSTATE [None]
  - INTERNATIONAL NORMALISED RATIO INCREASED [None]
  - DEVICE RELATED INFECTION [None]
  - FALL [None]
  - HAEMATURIA [None]
